FAERS Safety Report 6585236-6 (Version None)
Quarter: 2010Q1

REPORT INFORMATION
  Report Type: 
  Country: None (occurrence: None)
  Receive Date: 20100204
  Receipt Date: 20100121
  Transmission Date: 20100710
  Serious: Yes (Hospitalization)
  Sender: FDA-Public Use
  Company Number: AMAG201000045

PATIENT
  Age: 76 Year
  Sex: Male
  Weight: 93 kg

DRUGS (9)
  1. FERAHEME [Suspect]
     Indication: IRON DEFICIENCY ANAEMIA
     Dosage: 5 ML, SINGLE, INTRAVENOUS
     Route: 042
     Dates: start: 20100112, end: 20100112
  2. ATENOLOL [Concomitant]
  3. CARTIA XT [Concomitant]
  4. COUMADIN (COUMARIN) [Concomitant]
  5. MECLIZINE [Concomitant]
  6. PHOSLO (CALCIUM ACETATE) TABLET [Concomitant]
  7. ZOLPIDEM (ZOLPIDEM TARTRATE) SYRUP [Concomitant]
  8. EPOGEN [Concomitant]
  9. HEPARIN [Concomitant]

REACTIONS (9)
  - ANAPHYLACTOID REACTION [None]
  - ATRIAL FLUTTER [None]
  - BLOOD PRESSURE INCREASED [None]
  - BLOOD PRESSURE SYSTOLIC INCREASED [None]
  - CHEST DISCOMFORT [None]
  - HEART RATE INCREASED [None]
  - HOT FLUSH [None]
  - HYPOVOLAEMIA [None]
  - TACHYCARDIA [None]
